FAERS Safety Report 5329346-X (Version None)
Quarter: 2007Q2

REPORT INFORMATION
  Report Type: 
  Country: None (occurrence: None)
  Receive Date: 20070518
  Receipt Date: 20070508
  Transmission Date: 20071010
  Serious: Yes (Other)
  Sender: FDA-Public Use
  Company Number: US-PFIZER INC-2007038688

PATIENT
  Sex: Female
  Weight: 78 kg

DRUGS (2)
  1. DILANTIN [Suspect]
     Indication: ANEURYSM RUPTURED
  2. ATIVAN [Concomitant]

REACTIONS (6)
  - ANTICONVULSANT DRUG LEVEL DECREASED [None]
  - ANTICONVULSANT DRUG LEVEL INCREASED [None]
  - CACHEXIA [None]
  - MALAISE [None]
  - STRESS [None]
  - WEIGHT DECREASED [None]
